FAERS Safety Report 4751876-X (Version None)
Quarter: 2005Q3

REPORT INFORMATION
  Report Type: 
  Country: None (occurrence: None)
  Receive Date: 20050822
  Receipt Date: 20050519
  Transmission Date: 20060218
  Serious: No
  Sender: FDA-Public Use
  Company Number: PHEH2005US05193

PATIENT
  Age: 69 Year
  Sex: Female

DRUGS (13)
  1. ZELNORM [Suspect]
     Indication: IRRITABLE BOWEL SYNDROME
     Dosage: 6 MG, BID, ORAL
     Route: 048
     Dates: start: 20050505
  2. BETAPACE [Concomitant]
  3. ATENOLOL [Concomitant]
  4. PROPRANOLOL HYDROCHLORIDE [Concomitant]
  5. HYDREA [Concomitant]
  6. ADALAT [Concomitant]
  7. LIPITOR [Concomitant]
  8. PLAVIX [Concomitant]
  9. PROTONIX ^WYETH-AYERST^ (PANTOPRAZOLE SODIUM) [Concomitant]
  10. WARFARIN SODIUM [Concomitant]
  11. ISMO [Concomitant]
  12. ENALAPRIL MALEATE [Concomitant]
  13. TRIAMTERENE AND HYDROCHLOROTHIAZID ^HARRIS^ (HYDROCHLOROTHIAZIDE, TRIA [Concomitant]

REACTIONS (2)
  - CONSTIPATION [None]
  - DIARRHOEA [None]
